FAERS Safety Report 5213574-8 (Version None)
Quarter: 2007Q1

REPORT INFORMATION
  Report Type: 
  Country: None (occurrence: None)
  Receive Date: 20070119
  Receipt Date: 20070108
  Transmission Date: 20070707
  Serious: Yes (Other)
  Sender: FDA-Public Use
  Company Number: 2007UW01039

PATIENT
  Age: 67 Year
  Sex: Female

DRUGS (9)
  1. ROSUVASTATIN CALCIUM [Suspect]
     Indication: DYSLIPIDAEMIA
     Route: 048
  2. FENOFIBRIC ACID [Suspect]
     Indication: DYSLIPIDAEMIA
     Route: 048
     Dates: start: 20060607
  3. LOSARTAN POTASSIUM [Concomitant]
     Indication: HYPERTENSION
     Dates: start: 19980101
  4. SERTRALINE HYDROCHLORIDE [Concomitant]
     Indication: DEPRESSION
     Dates: start: 20011107
  5. CRESTOR [Concomitant]
     Indication: HYPERLIPIDAEMIA
     Route: 048
     Dates: start: 20040130, end: 20060420
  6. ASPIRIN [Concomitant]
     Indication: ANGINA UNSTABLE
     Dates: start: 19970101
  7. PANTOPRAZOLE SODIUM [Concomitant]
     Indication: ANGINA UNSTABLE
     Route: 048
     Dates: start: 20040503
  8. NITRO-DUR [Concomitant]
     Indication: ANGINA UNSTABLE
     Dates: start: 19971201
  9. CENTRUM [Concomitant]
     Indication: ROUTINE HEALTH MAINTENANCE
     Dates: start: 19910101

REACTIONS (1)
  - CORONARY ARTERY DISEASE [None]
